FAERS Safety Report 11083352 (Version 1)
Quarter: 2015Q2

REPORT INFORMATION
  Report Type: Spontaneous
  Country: FR (occurrence: FR)
  Receive Date: 20150501
  Receipt Date: 20150501
  Transmission Date: 20150821
  Serious: Yes (Other)
  Sender: FDA-Public Use
  Company Number: FR-TEVA-558619ISR

PATIENT
  Sex: Female

DRUGS (11)
  1. SINEMET [Suspect]
     Active Substance: CARBIDOPA\LEVODOPA
     Indication: PARKINSONISM
     Dosage: 450 MILLIGRAM DAILY;
     Route: 048
     Dates: start: 200207, end: 200301
  2. SIFROL 0.7 MG [Suspect]
     Active Substance: PRAMIPEXOLE
     Dosage: 1.75 MILLIGRAM DAILY;
     Route: 048
     Dates: start: 201105, end: 201206
  3. MODOPAR 62.5 (50 MG/12.5 MG) [Suspect]
     Active Substance: BENSERAZIDE HYDROCHLORIDE\LEVODOPA
     Indication: PARKINSONISM
     Dosage: 2 DOSAGE FORMS DAILY;
     Route: 048
     Dates: start: 200301
  4. REQUIP LP [Suspect]
     Active Substance: ROPINIROLE HYDROCHLORIDE
     Indication: PARKINSONISM
     Dosage: 8 MILLIGRAM DAILY; SUSTAINED-RELEASE
     Route: 048
     Dates: start: 201206
  5. MODOPAR 125 DISPERSIBLE (100 MG/25 MG) [Suspect]
     Active Substance: BENSERAZIDE\LEVODOPA
     Indication: PARKINSONISM
     Dosage: 1.5 TABLET DAILY;
     Route: 048
     Dates: start: 201003, end: 20130620
  6. SIFROL 0.7 MG [Suspect]
     Active Substance: PRAMIPEXOLE
     Dosage: 1.4 MILLIGRAM DAILY;
     Route: 048
     Dates: start: 201003, end: 201105
  7. AZILECT [Suspect]
     Active Substance: RASAGILINE MESYLATE
     Dosage: 1 MILLIGRAM DAILY;
     Route: 048
     Dates: start: 201105
  8. PARLODEL [Suspect]
     Active Substance: BROMOCRIPTINE MESYLATE
     Indication: PARKINSONISM
     Dosage: 60 MILLIGRAM DAILY;
     Route: 048
     Dates: start: 200010, end: 200610
  9. SIFROL 1 MG [Suspect]
     Active Substance: PRAMIPEXOLE
     Dosage: 2.5 MILLIGRAM DAILY;
     Route: 048
     Dates: start: 200610, end: 201206
  10. DEROXAT [Concomitant]
     Active Substance: PAROXETINE HYDROCHLORIDE
     Dosage: 20 MILLIGRAM DAILY;
     Route: 048
     Dates: start: 201212
  11. MODOPAR 125 (100 MG/25 MG) [Suspect]
     Active Substance: BENSERAZIDE\LEVODOPA
     Dosage: 3 DOSAGE FORMS DAILY;
     Route: 048
     Dates: start: 200301

REACTIONS (4)
  - Eating disorder [Not Recovered/Not Resolved]
  - Hypersexuality [Not Recovered/Not Resolved]
  - Compulsive shopping [Not Recovered/Not Resolved]
  - Pathological gambling [Not Recovered/Not Resolved]

NARRATIVE: CASE EVENT DATE: 2001
